FAERS Safety Report 6285931-2 (Version None)
Quarter: 2009Q3

REPORT INFORMATION
  Report Type: 
  Country: None (occurrence: None)
  Receive Date: 20090728
  Receipt Date: 20090420
  Transmission Date: 20100115
  Serious: No
  Sender: FDA-Public Use
  Company Number: A0780628A

PATIENT
  Age: 54 Year
  Sex: Male

DRUGS (1)
  1. DYAZIDE [Suspect]
     Indication: DRUG USE FOR UNKNOWN INDICATION
     Route: 065

REACTIONS (3)
  - ERYTHEMA [None]
  - HYPERSENSITIVITY [None]
  - INSOMNIA [None]
